APPROVED DRUG PRODUCT: AMPICILLIN TRIHYDRATE
Active Ingredient: AMPICILLIN/AMPICILLIN TRIHYDRATE
Strength: EQ 500MG BASE
Dosage Form/Route: CAPSULE;ORAL
Application: A064082 | Product #002 | TE Code: AB
Applicant: SANDOZ INC
Approved: Aug 29, 1995 | RLD: No | RS: Yes | Type: RX